FAERS Safety Report 10694851 (Version 1)
Quarter: 2015Q1

REPORT INFORMATION
  Report Type: Spontaneous
  Country: US (occurrence: None)
  Receive Date: 20150106
  Receipt Date: 20150106
  Transmission Date: 20150721
  Serious: Yes (Hospitalization, Disabling, Other)
  Sender: FDA-Public Use
  Company Number: None

PATIENT
  Age: 57 Year
  Weight: 77.11 kg

DRUGS (1)
  1. CIPROFLOXIN [Suspect]
     Active Substance: CIPROFLOXACIN
     Indication: DIVERTICULITIS
     Route: 048

REACTIONS (5)
  - Gastric disorder [None]
  - Collagen disorder [None]
  - Neuropathy peripheral [None]
  - Connective tissue disorder [None]
  - Fibromyalgia [None]

NARRATIVE: CASE EVENT DATE: 20140712
